FAERS Safety Report 5359618-4 (Version None)
Quarter: 2007Q2

REPORT INFORMATION
  Report Type: 
  Country: None (occurrence: None)
  Receive Date: 20070615
  Receipt Date: 20070607
  Transmission Date: 20071010
  Serious: Yes (Other)
  Sender: FDA-Public Use
  Company Number: US-SHR-US-2007-021569

PATIENT
  Age: 31 Year
  Sex: Female
  Weight: 70 kg

DRUGS (1)
  1. MIRENA [Suspect]
     Dosage: 20 A?G/DAY, CONT
     Route: 015
     Dates: start: 20061201

REACTIONS (5)
  - MENORRHAGIA [None]
  - METRORRHAGIA [None]
  - OVARIAN CYST [None]
  - UTERINE MASS [None]
  - WEIGHT INCREASED [None]
